FAERS Safety Report 8869889 (Version 1)
Quarter: 2012Q4

REPORT INFORMATION
  Report Type: 
  Country: US (occurrence: US)
  Receive Date: 20121023
  Receipt Date: 20121023
  Transmission Date: 20130627
  Serious: No
  Sender: FDA-Public Use
  Company Number: US-AMGEN-USASP2012039489

PATIENT

DRUGS (4)
  1. ENBREL [Suspect]
     Indication: PRODUCT USED FOR UNKNOWN INDICATION
     Dosage: 25 mg, 2 times/wk
     Route: 058
  2. LISINOPRIL [Concomitant]
     Dosage: 2.5 mg, UNK
  3. HYDROCODONE [Concomitant]
     Dosage: Sol 7.5-500
  4. ALLOPURINOL [Concomitant]
     Dosage: 300 mg, UNK

REACTIONS (2)
  - Contusion [Unknown]
  - Fatigue [Unknown]
